FAERS Safety Report 4336905-X (Version None)
Quarter: 2004Q2

REPORT INFORMATION
  Report Type: 
  Country: None (occurrence: None)
  Receive Date: 20040412
  Receipt Date: 20040220
  Transmission Date: 20050107
  Serious: Yes (Hospitalization, Disabling, Other)
  Sender: FDA-Public Use
  Company Number: US-MERCK-0402USA01644

PATIENT
  Age: 60 Year
  Sex: Male
  Weight: 76 kg

DRUGS (5)
  1. LIPITOR [Concomitant]
     Route: 065
  2. CANCIDAS [Suspect]
     Indication: SYSTEMIC CANDIDA
     Route: 042
     Dates: start: 20040228, end: 20040328
  3. CANCIDAS [Suspect]
     Indication: GENERAL SYMPTOM
     Route: 042
     Dates: start: 20040228, end: 20040328
  4. DECADRON [Suspect]
     Route: 048
  5. SULFASALAZINE [Concomitant]
     Route: 065

REACTIONS (6)
  - DRUG INEFFECTIVE [None]
  - DRUG INTERACTION [None]
  - HYPOALBUMINAEMIA [None]
  - LIVER FUNCTION TEST ABNORMAL [None]
  - MALABSORPTION [None]
  - OEDEMA [None]
